FAERS Safety Report 4960636-6 (Version None)
Quarter: 2006Q1

REPORT INFORMATION
  Report Type: 
  Country: None (occurrence: None)
  Receive Date: 20060331
  Receipt Date: 20060331
  Transmission Date: 20060701
  Serious: Yes (Hospitalization)
  Sender: FDA-Public Use
  Company Number: None

PATIENT
  Sex: Female
  Weight: 70.5 kg

DRUGS (3)
  1. FLUOROURACIL [Suspect]
     Indication: BLADDER CANCER
     Dosage: 4200 MG
     Dates: start: 20041213, end: 20041230
  2. FLUOROURACIL [Suspect]
     Indication: TRANSITIONAL CELL CARCINOMA
     Dosage: 4200 MG
     Dates: start: 20041213, end: 20041230
  3. CISPLATIN [Suspect]
     Dosage: 236.25 MG
     Dates: start: 20051213, end: 20051230

REACTIONS (12)
  - CLOSTRIDIUM COLITIS [None]
  - DEPRESSION [None]
  - FLAT FEET [None]
  - HAEMORRHOIDS [None]
  - HYPERKERATOSIS [None]
  - INTESTINAL POLYP [None]
  - JOINT CONTRACTURE [None]
  - NAIL DYSTROPHY [None]
  - ONYCHOMYCOSIS [None]
  - PAIN [None]
  - PEPTIC ULCER [None]
  - SKIN LESION [None]
